FAERS Safety Report 7396430-9 (Version None)
Quarter: 2011Q2

REPORT INFORMATION
  Report Type: 
  Country: None (occurrence: None)
  Receive Date: 20110406
  Receipt Date: 20110324
  Transmission Date: 20111010
  Serious: Yes (Other)
  Sender: FDA-Public Use
  Company Number: US-ELI_LILLY_AND_COMPANY-US201103008865

PATIENT
  Sex: Female

DRUGS (1)
  1. SYMBYAX [Suspect]
     Indication: DEPRESSION
     Dosage: 18/75 MG, QD
     Route: 065

REACTIONS (5)
  - SYNCOPE [None]
  - WEIGHT INCREASED [None]
  - OVERDOSE [None]
  - PARKINSONISM [None]
  - FALL [None]
